FAERS Safety Report 24071795 (Version 1)
Quarter: 2024Q3

REPORT INFORMATION
  Report Type: Report from Study
  Country: TR (occurrence: TR)
  Receive Date: 20240710
  Receipt Date: 20240710
  Transmission Date: 20241017
  Serious: No
  Sender: ROCHE
  Company Number: TR-ROCHE-3577334

PATIENT
  Age: 37 Year
  Sex: Male
  Weight: 69.0 kg

DRUGS (17)
  1. ALECTINIB [Suspect]
     Active Substance: ALECTINIB
     Indication: Lung cancer metastatic
     Route: 048
     Dates: start: 20210324
  2. ALECTINIB [Suspect]
     Active Substance: ALECTINIB
     Route: 048
     Dates: start: 20210611
  3. GERALGINE-K [Concomitant]
     Dates: start: 20210310
  4. DEXAMETHASONE [Concomitant]
     Active Substance: DEXAMETHASONE
     Route: 048
     Dates: start: 20210317
  5. DELTACORTRIL [Concomitant]
     Active Substance: PREDNISOLONE
     Route: 048
     Dates: start: 20210907, end: 20231029
  6. SULFASALAZINE [Concomitant]
     Active Substance: SULFASALAZINE
     Route: 048
     Dates: start: 20210907, end: 20231029
  7. D-COLEFOR [Concomitant]
     Route: 048
     Dates: start: 20210907
  8. KEPPRA [Concomitant]
     Active Substance: LEVETIRACETAM
     Route: 048
     Dates: start: 20220825
  9. LANSOPRAZOLE [Concomitant]
     Active Substance: LANSOPRAZOLE
     Route: 048
     Dates: start: 20210317
  10. BEVACIZUMAB [Concomitant]
     Active Substance: BEVACIZUMAB
     Route: 042
     Dates: start: 20220517, end: 20220614
  11. BEVACIZUMAB [Concomitant]
     Active Substance: BEVACIZUMAB
     Route: 042
     Dates: start: 20221103, end: 20221215
  12. BEVACIZUMAB [Concomitant]
     Active Substance: BEVACIZUMAB
     Route: 042
     Dates: start: 20230522, end: 20230605
  13. CIPRALEX [Concomitant]
     Active Substance: ESCITALOPRAM OXALATE
     Route: 048
     Dates: start: 20221003
  14. NUROFEN COLD + FLU (TURKIYE) [Concomitant]
     Route: 048
     Dates: start: 20220921, end: 20220929
  15. BACTROBAN [Concomitant]
     Active Substance: MUPIROCIN CALCIUM
     Route: 008
     Dates: start: 20220517
  16. PAROL [Concomitant]
     Active Substance: ACETAMINOPHEN
     Route: 048
     Dates: start: 20220913, end: 20220922
  17. LORLATINIB [Concomitant]
     Active Substance: LORLATINIB
     Dates: start: 20230109, end: 20231028

REACTIONS (1)
  - Stomatitis [Not Recovered/Not Resolved]

NARRATIVE: CASE EVENT DATE: 20220614
